FAERS Safety Report 16573483 (Version 1)
Quarter: 2019Q3

REPORT INFORMATION
  Report Type: Spontaneous
  Country: US (occurrence: US)
  Receive Date: 20190531
  Receipt Date: 20190531
  Transmission Date: 20191004
  Serious: Yes (Death, Life-Threatening, Hospitalization, Disabling)
  Sender: FDA-Public Use
  Company Number: None

PATIENT
  Age: 84 Year
  Sex: Male
  Weight: 81.92 kg

DRUGS (1)
  1. WARFARIN [Suspect]
     Active Substance: WARFARIN
     Indication: FACTOR V LEIDEN MUTATION
     Dates: start: 20090521, end: 20190304

REACTIONS (11)
  - Ileus [None]
  - Pneumonia [None]
  - Haemorrhage intracranial [None]
  - Respiratory failure [None]
  - Brain midline shift [None]
  - Mental status changes [None]
  - Aspiration [None]
  - Seizure [None]
  - Haemorrhage [None]
  - Subdural haematoma [None]
  - Anticoagulation drug level below therapeutic [None]

NARRATIVE: CASE EVENT DATE: 20190304
